FAERS Safety Report 6528874-9 (Version None)
Quarter: 2010Q1

REPORT INFORMATION
  Report Type: 
  Country: None (occurrence: None)
  Receive Date: 20100106
  Receipt Date: 20100105
  Transmission Date: 20100710
  Serious: Yes (Disabling)
  Sender: FDA-Public Use
  Company Number: US-B.I. PHARMACEUTICALS,INC./RIDGEFIELD-2009-BP-14503BP

PATIENT
  Age: 74 Year
  Sex: Female

DRUGS (6)
  1. SPIRIVA [Suspect]
     Indication: EMPHYSEMA
     Dosage: 18 MCG
     Route: 055
     Dates: start: 20060101
  2. PULMICORT [Concomitant]
     Indication: EMPHYSEMA
  3. ALBUTEROL [Concomitant]
     Indication: EMPHYSEMA
  4. PROVENTIL [Concomitant]
     Indication: EMPHYSEMA
  5. AMLODIPINE [Concomitant]
     Indication: HYPERTENSION
  6. OXYGEN [Concomitant]

REACTIONS (6)
  - BLINDNESS [None]
  - CATARACT [None]
  - GASTROOESOPHAGEAL REFLUX DISEASE [None]
  - GLAUCOMA [None]
  - OEDEMA PERIPHERAL [None]
  - VISION BLURRED [None]
